FAERS Safety Report 5952385-2 (Version None)
Quarter: 2008Q4

REPORT INFORMATION
  Report Type: 
  Country: None (occurrence: None)
  Receive Date: 20081113
  Receipt Date: 20081105
  Transmission Date: 20090506
  Serious: Yes (Disabling)
  Sender: FDA-Public Use
  Company Number: CH-PFIZER INC-2008088682

PATIENT
  Sex: Female
  Weight: 59 kg

DRUGS (2)
  1. CHAMPIX [Suspect]
     Indication: EX-TOBACCO USER
     Route: 048
     Dates: start: 20080429, end: 20080728
  2. OMEPRAZOLE [Concomitant]
     Route: 048
     Dates: start: 20080108

REACTIONS (1)
  - BASEDOW'S DISEASE [None]
